FAERS Safety Report 6416529-0 (Version None)
Quarter: 2009Q4

REPORT INFORMATION
  Report Type: 
  Country: None (occurrence: None)
  Receive Date: 20091027
  Receipt Date: 20091015
  Transmission Date: 20100525
  Serious: Yes (Other)
  Sender: FDA-Public Use
  Company Number: PHHY2009DE37975

PATIENT
  Sex: Female

DRUGS (3)
  1. ZOMETA [Suspect]
     Dosage: 4 MG, UNK
     Route: 042
     Dates: start: 20090227, end: 20090817
  2. DOCETAXEL [Concomitant]
     Indication: BREAST CANCER
     Dosage: 75 MG; 3QW
     Dates: start: 20090302, end: 20090615
  3. DEXAMETHASONE [Concomitant]
     Indication: VOMITING
     Dosage: 8 MG 3QW
     Route: 048
     Dates: start: 20090302, end: 20090615

REACTIONS (1)
  - OSTEONECROSIS [None]
